FAERS Safety Report 20532438 (Version 2)
Quarter: 2022Q1

REPORT INFORMATION
  Report Type: Report from Study
  Country: FR (occurrence: None)
  Receive Date: 20220301
  Receipt Date: 20220309
  Transmission Date: 20220423
  Serious: Yes (Hospitalization)
  Sender: FDA-Public Use
  Company Number: 2022A090300

PATIENT
  Age: 55 Year
  Sex: Male

DRUGS (13)
  1. EVUSHELD [Suspect]
     Active Substance: CILGAVIMAB\TIXAGEVIMAB
     Indication: COVID-19 prophylaxis
     Route: 030
     Dates: start: 20220125
  2. NEORAL [Concomitant]
     Active Substance: CYCLOSPORINE
     Dosage: 90 MG IN THE MORNING AND IN THE EVENING
     Route: 065
  3. CELLCEPT [Concomitant]
     Active Substance: MYCOPHENOLATE MOFETIL
     Dosage: 500 MG 3 TABLETS IN THE MORNING AND IN THE EVENING
     Route: 065
  4. CERTICAN [Concomitant]
     Active Substance: EVEROLIMUS
     Dosage: 1 MG IN THE MORNING AND IN THE EVENING
     Route: 065
  5. SOLUPRED [Concomitant]
     Dosage: 10 MG IN THE MORNING
     Route: 065
  6. VALGANCICLOVIR HYDROCHLORIDE [Concomitant]
     Active Substance: VALGANCICLOVIR HYDROCHLORIDE
     Dosage: 2 DAILY
     Route: 065
  7. ZITHROMAX [Concomitant]
     Active Substance: AZITHROMYCIN DIHYDRATE
     Dosage: 250MG AT NOON
     Route: 065
  8. NEBIVOLOL [Concomitant]
     Active Substance: NEBIVOLOL
     Dosage: 5 MG IN THE MORNING
     Route: 065
  9. RAMIPRIL [Concomitant]
     Active Substance: RAMIPRIL
     Dosage: 2.5 MG IN THE MORNING
     Route: 065
  10. KEPPRA [Concomitant]
     Active Substance: LEVETIRACETAM
     Dosage: 500 MG IN THE MORNING AND IN THE EVENING
     Route: 065
  11. VIMPAT [Concomitant]
     Active Substance: LACOSAMIDE
     Dosage: 100 MG IN THE MORNING AND IN THE EVENING
     Route: 065
  12. CALCIUM PHOSPHATE, DIBASIC, ANHYDROUS\MAGNESIUM GLYCEROPHOSPHATE\PHOSP [Concomitant]
     Active Substance: CALCIUM PHOSPHATE, DIBASIC, ANHYDROUS\MAGNESIUM GLYCEROPHOSPHATE\PHOSPHORIC ACID\SODIUM PHOSPHATE, D
     Dosage: 100 IN THE MORNING AND IN THE EVENING
     Route: 065
  13. PANTOPRAZOLE [Concomitant]
     Active Substance: PANTOPRAZOLE
     Dosage: 20 MG IN THE EVENING
     Route: 065

REACTIONS (1)
  - Deep vein thrombosis [Recovering/Resolving]

NARRATIVE: CASE EVENT DATE: 20220125
